FAERS Safety Report 6687909-3 (Version None)
Quarter: 2010Q2

REPORT INFORMATION
  Report Type: 
  Country: None (occurrence: None)
  Receive Date: 20100420
  Receipt Date: 20100413
  Transmission Date: 20101027
  Serious: Yes (Hospitalization)
  Sender: FDA-Public Use
  Company Number: US-SANOFI-AVENTIS-2010SA012418

PATIENT
  Age: 66 Year
  Sex: Male
  Weight: 159.1 kg

DRUGS (18)
  1. PLAVIX [Suspect]
     Route: 048
     Dates: start: 20060101
  2. PLAVIX [Suspect]
     Indication: STENT PLACEMENT
     Route: 048
     Dates: start: 20060101
  3. OMEPRAZOLE [Suspect]
     Dosage: ALTERNATING OCCASIONALLY WITH PROTONIX
     Route: 065
  4. PROTONIX [Concomitant]
     Route: 065
     Dates: start: 20090801
  5. TOPROL-XL [Concomitant]
     Route: 048
  6. ASPIRIN [Concomitant]
     Route: 048
  7. VYTORIN [Concomitant]
     Route: 065
  8. AVODART [Concomitant]
     Route: 048
  9. FLOMAX [Concomitant]
     Route: 048
  10. IMDUR [Concomitant]
     Route: 048
  11. LISINOPRIL [Concomitant]
     Route: 048
  12. LASIX [Concomitant]
     Route: 048
  13. MOBIC [Concomitant]
     Route: 048
  14. POTASSIUM CHLORIDE [Concomitant]
     Route: 048
  15. AMIODARONE [Concomitant]
     Route: 048
  16. METFORMIN HCL [Concomitant]
     Route: 048
  17. LYRICA [Concomitant]
     Dosage: 50 UP TO TID
     Route: 065
  18. HYDROCODONE BITARTRATE [Concomitant]
     Dosage: UP TO BID

REACTIONS (4)
  - ATRIAL FIBRILLATION [None]
  - DRUG INTERACTION [None]
  - MYOCARDIAL INFARCTION [None]
  - STAPHYLOCOCCAL SEPSIS [None]
